FAERS Safety Report 23649216 (Version 1)
Quarter: 2024Q1

REPORT INFORMATION
  Report Type: Spontaneous
  Country: US (occurrence: US)
  Receive Date: 20240319
  Receipt Date: 20240319
  Transmission Date: 20240410
  Serious: Yes (Other)
  Sender: FDA-Public Use
  Company Number: US-PFIZER INC-202400066013

PATIENT
  Sex: Female

DRUGS (1)
  1. SYNAREL [Suspect]
     Active Substance: NAFARELIN ACETATE
     Indication: Endometriosis
     Dosage: UNK

REACTIONS (3)
  - Umbilical hernia [Unknown]
  - Off label use [Unknown]
  - Drug effective for unapproved indication [Unknown]
